FAERS Safety Report 18918286 (Version 1)
Quarter: 2021Q1

REPORT INFORMATION
  Report Type: Spontaneous
  Country: CA (occurrence: CA)
  Receive Date: 20210219
  Receipt Date: 20210219
  Transmission Date: 20210420
  Serious: Yes (Other)
  Sender: FDA-Public Use
  Company Number: CA-BAUSCH-BL-2021-006083

PATIENT
  Sex: Female

DRUGS (2)
  1. ARESTIN [Suspect]
     Active Substance: MINOCYCLINE HYDROCHLORIDE
  2. ARESTIN [Suspect]
     Active Substance: MINOCYCLINE HYDROCHLORIDE
     Indication: PERIODONTITIS
     Dosage: 1/4 MG/MG. TWO CARTRIDGES OF ARESTIN (SO, TOTAL OF 2 MG)
     Route: 004

REACTIONS (1)
  - Immunoglobulin G4 related disease [Unknown]
